FAERS Safety Report 16919273 (Version 3)
Quarter: 2019Q4

REPORT INFORMATION
  Report Type: Spontaneous
  Country: US (occurrence: US)
  Receive Date: 20191015
  Receipt Date: 20191122
  Transmission Date: 20200122
  Serious: No
  Sender: FDA-Public Use
  Company Number: US-PFIZER INC-2019443946

PATIENT
  Age: 35 Year
  Sex: Female
  Weight: 145 kg

DRUGS (2)
  1. RELPAX [Suspect]
     Active Substance: ELETRIPTAN HYDROBROMIDE
     Indication: MIGRAINE
     Dosage: 40 MG, AS NEEDED(40MG BY MOUTH AS NEEDED TWICE DAILY)
     Route: 048
     Dates: start: 20190513, end: 201908
  2. RELPAX [Suspect]
     Active Substance: ELETRIPTAN HYDROBROMIDE
     Dosage: 40 MG, 2X/DAY
     Route: 048
     Dates: end: 201909

REACTIONS (4)
  - Recalled product administered [Recovered/Resolved]
  - Scar [Not Recovered/Not Resolved]
  - Contusion [Unknown]
  - Furuncle [Recovering/Resolving]

NARRATIVE: CASE EVENT DATE: 2019
